FAERS Safety Report 9069056 (Version 1)
Quarter: 2013Q1

REPORT INFORMATION
  Report Type: Spontaneous
  Country: BR (occurrence: BR)
  Receive Date: 20130128
  Receipt Date: 20130128
  Transmission Date: 20140127
  Serious: Yes (Hospitalization)
  Sender: FDA-Public Use
  Company Number: PHHY2013BR006523

PATIENT
  Sex: Male
  Weight: 118 kg

DRUGS (4)
  1. LEPONEX [Suspect]
     Indication: SCHIZOPHRENIA
     Dosage: 25 MG, UNK
     Route: 048
     Dates: start: 2000, end: 2010
  2. LEPONEX [Suspect]
     Dosage: 100 MG, (ONE AND HALF TABLET DAILY )
     Route: 048
  3. TEGRETOL [Suspect]
     Indication: EPILEPSY
     Dosage: 200 MG, (2 TABLETS DAILY)
     Route: 048
  4. GARDENAL [Concomitant]
     Indication: EPILEPSY
     Dosage: 100 MG, (1 TABLET PER DAY)
     Route: 048

REACTIONS (5)
  - Schizophrenia [Recovering/Resolving]
  - Nervousness [Recovering/Resolving]
  - Fear [Recovering/Resolving]
  - Screaming [Recovering/Resolving]
  - Epilepsy [Recovering/Resolving]
